FAERS Safety Report 7710084-0 (Version None)
Quarter: 2011Q3

REPORT INFORMATION
  Report Type: 
  Country: None (occurrence: None)
  Receive Date: 20110825
  Receipt Date: 20110823
  Transmission Date: 20111222
  Serious: Yes (Death, Other)
  Sender: FDA-Public Use
  Company Number: PHHY2011DE75330

PATIENT
  Age: 13 Year
  Sex: Male

DRUGS (8)
  1. IRINOTECAN HCL [Suspect]
     Dosage: 130 MG/M2, UNK
     Route: 042
  2. OXALIPLATIN [Suspect]
     Indication: NEUROENDOCRINE CARCINOMA
     Dosage: 85 MG/M2, Q2H
     Route: 042
  3. GEMCITABINE [Suspect]
     Dosage: 1000 MG/M2, Q2H
     Route: 042
  4. OXALIPLATIN [Suspect]
     Dosage: 65 MG/M2, UNK
     Route: 042
  5. GEMCITABINE [Suspect]
     Dosage: 480 MG/M2, UNK
     Route: 042
  6. GEMCITABINE [Suspect]
     Indication: NEUROENDOCRINE CARCINOMA
     Dosage: 1000 MG/M2/0.5 HR
     Route: 042
  7. GEMCITABINE [Suspect]
     Dosage: 645 MG/M2, UNK
     Route: 042
  8. IRINOTECAN HCL [Suspect]
     Indication: NEUROENDOCRINE CARCINOMA
     Dosage: 175 MG/M2, Q2H
     Route: 042

REACTIONS (3)
  - DEATH [None]
  - HAEMATOTOXICITY [None]
  - C-REACTIVE PROTEIN INCREASED [None]
